FAERS Safety Report 9774997 (Version 3)
Quarter: 2014Q2

REPORT INFORMATION
  Report Type: Spontaneous
  Country: US (occurrence: US)
  Receive Date: 20131220
  Receipt Date: 20140415
  Transmission Date: 20141212
  Serious: Yes (Hospitalization)
  Sender: FDA-Public Use
  Company Number: US-BAYER-2013-153985

PATIENT
  Age: 22 Year
  Sex: Female
  Weight: 72.56 kg

DRUGS (4)
  1. MIRENA [Suspect]
     Indication: CONTRACEPTION
     Dosage: 20 MCG/24HR, CONT
     Route: 015
     Dates: start: 20110331, end: 20120608
  2. ORTHO TRI-CYCLEN [Concomitant]
  3. VICODIN [Concomitant]
  4. MOTRIN [Concomitant]

REACTIONS (8)
  - Uterine perforation [None]
  - Ectopic pregnancy [None]
  - Ruptured ectopic pregnancy [None]
  - Drug ineffective [None]
  - Injury [None]
  - Medical device discomfort [None]
  - Medical device pain [None]
  - Depression [None]
